FAERS Safety Report 5357328-0 (Version None)
Quarter: 2007Q2

REPORT INFORMATION
  Report Type: 
  Country: None (occurrence: None)
  Receive Date: 20070614
  Receipt Date: 20070608
  Transmission Date: 20071010
  Serious: Yes (Death)
  Sender: FDA-Public Use
  Company Number: A0641595A

PATIENT
  Age: 77 Year
  Sex: Male

DRUGS (5)
  1. COREG [Suspect]
     Indication: ASCITES
     Dosage: 3.125MG TWICE PER DAY
     Route: 048
     Dates: start: 20060807
  2. LIPITOR [Concomitant]
  3. LISINOPRIL [Concomitant]
  4. HYDROCHLOROTHIAZIDE [Concomitant]
  5. MULTIVITAMIN [Concomitant]

REACTIONS (3)
  - LOSS OF CONSCIOUSNESS [None]
  - MALAISE [None]
  - MYOCARDIAL INFARCTION [None]
